FAERS Safety Report 7280336-X (Version None)
Quarter: 2011Q1

REPORT INFORMATION
  Report Type: 
  Country: None (occurrence: None)
  Receive Date: 20110128
  Receipt Date: 20101231
  Transmission Date: 20110831
  Serious: Yes (Death)
  Sender: FDA-Public Use
  Company Number: AUR-APL-2011-00118

PATIENT
  Age: 4 Year
  Sex: Female

DRUGS (1)
  1. METFORMIN HCL [Suspect]
     Dosage: ORAL
     Route: 048

REACTIONS (17)
  - VOMITING [None]
  - GAZE PALSY [None]
  - UNRESPONSIVE TO STIMULI [None]
  - TROPONIN INCREASED [None]
  - NECROSIS ISCHAEMIC [None]
  - BLOOD GLUCOSE INCREASED [None]
  - HAEMATEMESIS [None]
  - NO THERAPEUTIC RESPONSE [None]
  - VISCERAL CONGESTION [None]
  - SHOCK HYPOGLYCAEMIC [None]
  - THIRST [None]
  - ACCIDENTAL DRUG INTAKE BY CHILD [None]
  - HEART RATE INCREASED [None]
  - ANURIA [None]
  - TOXICITY TO VARIOUS AGENTS [None]
  - ACIDOSIS [None]
  - BRADYCARDIA [None]
